FAERS Safety Report 24054733 (Version 1)
Quarter: 2024Q3

REPORT INFORMATION
  Report Type: Spontaneous
  Country: US (occurrence: None)
  Receive Date: 20240703
  Receipt Date: 20240703
  Transmission Date: 20241016
  Serious: Yes (Other)
  Sender: Public
  Company Number: None

PATIENT
  Age: 73 Year
  Sex: Female

DRUGS (13)
  1. OPSUMIT [Suspect]
     Active Substance: MACITENTAN
     Indication: Pulmonary arterial hypertension
     Dosage: FREQUENCY : DAILY;?
     Route: 048
     Dates: start: 20240215, end: 20240524
  2. SELEXIPAG [Suspect]
     Active Substance: SELEXIPAG
  3. BUMETANIDE [Concomitant]
     Active Substance: BUMETANIDE
  4. POTASSIUM CHLORIDE [Concomitant]
     Active Substance: POTASSIUM CHLORIDE
  5. MIRTAZAPINE [Concomitant]
     Active Substance: MIRTAZAPINE
  6. MIDODRINE [Concomitant]
     Active Substance: MIDODRINE
  7. SPIRONOLACTONE [Concomitant]
     Active Substance: SPIRONOLACTONE
  8. DRONABINOL [Concomitant]
     Active Substance: DRONABINOL
  9. FERROUS SULFATE [Concomitant]
     Active Substance: FERROUS SULFATE
  10. ASCORBIC ACID [Concomitant]
     Active Substance: ASCORBIC ACID
  11. ACYCLOVIR [Concomitant]
     Active Substance: ACYCLOVIR
  12. ACETAMINOPHEN [Concomitant]
     Active Substance: ACETAMINOPHEN
  13. FAMOTIDINE [Concomitant]
     Active Substance: FAMOTIDINE

REACTIONS (2)
  - Left ventricular end-diastolic pressure increased [None]
  - Therapy cessation [None]

NARRATIVE: CASE EVENT DATE: 20240524
